FAERS Safety Report 9967727 (Version 2)
Quarter: 2014Q1

REPORT INFORMATION
  Report Type: Report from Study
  Country: US (occurrence: US)
  Receive Date: 20140306
  Receipt Date: 20140306
  Transmission Date: 20141002
  Serious: No
  Sender: FDA-Public Use
  Company Number: US-ABBVIE-13P-163-1138270-00

PATIENT
  Age: 60 Year
  Sex: Female
  Weight: 92.16 kg

DRUGS (16)
  1. HUMIRA [Suspect]
     Indication: RHEUMATOID ARTHRITIS
     Dosage: INITIAL DOSE
     Dates: start: 20130822
  2. METHOTREXATE [Suspect]
     Indication: PRODUCT USED FOR UNKNOWN INDICATION
  3. UNKNOWN MEDICATION [Suspect]
     Indication: PRODUCT USED FOR UNKNOWN INDICATION
  4. TRAMADOL [Concomitant]
     Indication: PAIN
     Dosage: AS NEEDED
  5. LISINOPRIL [Concomitant]
     Indication: HYPERTENSION
     Dosage: 20MG EVERY DAY
  6. CRESTOR [Concomitant]
     Indication: BLOOD CHOLESTEROL INCREASED
     Dosage: 40MG EVERY DAY
  7. ZETIA [Concomitant]
     Indication: HYPERTENSION
     Dosage: 10MG EVERY DAY
  8. WELLBUTRIN [Concomitant]
     Indication: PRODUCT USED FOR UNKNOWN INDICATION
  9. LEXAPRO [Concomitant]
     Indication: DEPRESSION
  10. LEXAPRO [Concomitant]
     Indication: ANXIETY
  11. PREDNISONE [Concomitant]
     Indication: RHEUMATOID ARTHRITIS
     Dosage: 5MG QD
  12. MOBIC [Concomitant]
     Indication: ARTHRALGIA
     Dosage: 15MG QD
  13. 2 UNKNOWN EYE DROPS [Concomitant]
     Indication: PRODUCT USED FOR UNKNOWN INDICATION
  14. FORTEO [Concomitant]
     Indication: OSTEOPOROSIS
  15. METFORMIN [Concomitant]
     Indication: DIABETES MELLITUS
  16. FOLIC ACID [Concomitant]
     Indication: PRODUCT USED FOR UNKNOWN INDICATION

REACTIONS (5)
  - Oral discomfort [Recovered/Resolved]
  - Sinusitis [Recovering/Resolving]
  - Hypersensitivity [Recovering/Resolving]
  - Glossodynia [Unknown]
  - Dyspepsia [Not Recovered/Not Resolved]
